FAERS Safety Report 19448230 (Version 1)
Quarter: 2021Q2

REPORT INFORMATION
  Report Type: Spontaneous
  Country: US (occurrence: US)
  Receive Date: 20210622
  Receipt Date: 20210622
  Transmission Date: 20210717
  Serious: Yes (Other)
  Sender: FDA-Public Use
  Company Number: US-BRISTOL-MYERS SQUIBB COMPANY-BMS-2021-058576

PATIENT
  Age: 63 Year
  Sex: Female
  Weight: 80.2 kg

DRUGS (3)
  1. ELIQUIS [Suspect]
     Active Substance: APIXABAN
     Indication: DEEP VEIN THROMBOSIS
     Dosage: 5 MILLIGRAM, BID
     Route: 048
     Dates: start: 2018
  2. ELIQUIS [Suspect]
     Active Substance: APIXABAN
     Dosage: 2.5 MILLIGRAM, BID
     Route: 048
  3. ELIQUIS [Suspect]
     Active Substance: APIXABAN
     Dosage: 5 MILLIGRAM, BID
     Route: 048

REACTIONS (4)
  - Vitreous detachment [Unknown]
  - Product storage error [Unknown]
  - Deep vein thrombosis [Unknown]
  - Prescribed underdose [Unknown]

NARRATIVE: CASE EVENT DATE: 2018
